FAERS Safety Report 17810211 (Version 7)
Quarter: 2021Q4

REPORT INFORMATION
  Report Type: Report from Study
  Country: US (occurrence: US)
  Receive Date: 20200520
  Receipt Date: 20211020
  Transmission Date: 20220303
  Serious: Yes (Hospitalization, Other)
  Sender: FDA-Public Use
  Company Number: US-BRISTOL-MYERS SQUIBB COMPANY-BMS-2020-024287

PATIENT
  Age: 44 Year
  Sex: Female
  Weight: 92 kg

DRUGS (18)
  1. BMS-986299 [Suspect]
     Active Substance: BMS-986299
     Indication: Breast cancer
     Dosage: 2000 MICROGRAM
     Route: 036
     Dates: start: 20200303, end: 20200414
  2. NIVOLUMAB [Suspect]
     Active Substance: NIVOLUMAB
     Indication: Breast cancer
     Dosage: 480 MILLIGRAM
     Route: 042
     Dates: start: 20200303, end: 20200303
  3. IPILIMUMAB [Suspect]
     Active Substance: IPILIMUMAB
     Indication: Breast cancer
     Dosage: 92 MILLIGRAM
     Route: 042
     Dates: start: 20200303, end: 20200303
  4. ASCORBIC ACID [Concomitant]
     Active Substance: ASCORBIC ACID
     Indication: Product used for unknown indication
     Dosage: 1000 MILLIGRAM, TID
     Route: 048
     Dates: start: 20191015
  5. ACETAMINOPHEN [Concomitant]
     Active Substance: ACETAMINOPHEN
     Indication: Product used for unknown indication
     Dosage: 1 DOSAGE FORM,EVERY 6 HOURS
     Route: 048
     Dates: start: 20200303, end: 20200304
  6. ACETAMINOPHEN [Concomitant]
     Active Substance: ACETAMINOPHEN
     Dosage: 650 MILLIGRAM, QD
     Route: 048
     Dates: start: 20200310, end: 20200310
  7. ACETAMINOPHEN [Concomitant]
     Active Substance: ACETAMINOPHEN
     Dosage: 650 MILLIGRAM, QID
     Route: 048
     Dates: start: 20200311, end: 20200311
  8. LIDOCAINE AND PRILOCAINE [Concomitant]
     Active Substance: LIDOCAINE\PRILOCAINE
     Indication: Product used for unknown indication
     Dosage: AS NEEDED
     Route: 061
     Dates: start: 20190318
  9. LORAZEPAM [Concomitant]
     Active Substance: LORAZEPAM
     Indication: Product used for unknown indication
     Dosage: 0.5 MILLIGRAM, ONCE
     Route: 048
     Dates: start: 20200309
  10. LORAZEPAM [Concomitant]
     Active Substance: LORAZEPAM
     Dosage: 0.5 MILLIGRAM, Q12H
     Route: 048
     Dates: start: 20200416, end: 20200418
  11. ONDANSETRON [Concomitant]
     Active Substance: ONDANSETRON
     Indication: Product used for unknown indication
     Dosage: 4 MILLIGRAM, TID
     Route: 061
     Dates: start: 20190915
  12. VENLAFAXINE [Concomitant]
     Active Substance: VENLAFAXINE HYDROCHLORIDE
     Indication: Product used for unknown indication
     Dosage: 20 MILLIGRAM, ONCE
     Route: 048
     Dates: start: 20190921
  13. OMNIPAQUE [Concomitant]
     Active Substance: IOHEXOL
     Indication: Product used for unknown indication
     Dosage: 143 OTHER, ONE TIME DOSE
     Route: 042
     Dates: start: 20200316, end: 20200316
  14. PERFLUTREN [Concomitant]
     Active Substance: PERFLUTREN
     Indication: Product used for unknown indication
     Dosage: 1 DOSAGE FORM = 10 UNITS NOS, ONCE
     Route: 042
     Dates: start: 20200115, end: 20200515
  15. PROTONIX [Concomitant]
     Active Substance: PANTOPRAZOLE SODIUM
     Indication: Product used for unknown indication
     Dosage: UNK
     Route: 048
     Dates: start: 20190307
  16. PROTONIX [Concomitant]
     Active Substance: PANTOPRAZOLE SODIUM
     Dosage: 40 MILLIGRAM, QD
     Route: 048
     Dates: start: 20190310, end: 20190311
  17. PROTONIX [Concomitant]
     Active Substance: PANTOPRAZOLE SODIUM
     Dosage: 20 MILLIGRAM, ONCE
     Route: 048
     Dates: start: 20190312
  18. PROTONIX [Concomitant]
     Active Substance: PANTOPRAZOLE SODIUM
     Dosage: 40 MILLIGRAM, QD
     Route: 048
     Dates: start: 20200416, end: 20200418

REACTIONS (2)
  - Enteritis [Recovered/Resolved]
  - Diarrhoea [Recovered/Resolved]

NARRATIVE: CASE EVENT DATE: 20200316
